FAERS Safety Report 24661180 (Version 1)
Quarter: 2024Q4

REPORT INFORMATION
  Report Type: Spontaneous
  Country: US (occurrence: US)
  Receive Date: 20241125
  Receipt Date: 20241125
  Transmission Date: 20250115
  Serious: No
  Sender: AVADEL CNS PHARMACEUTICALS, LLC
  Company Number: US-AVADEL CNS PHARMACEUTICALS, LLC-2024AVA01611

PATIENT
  Age: 24 Year
  Sex: Female
  Weight: 55.238 kg

DRUGS (13)
  1. LUMRYZ [Suspect]
     Active Substance: SODIUM OXYBATE
     Indication: Narcolepsy
     Dosage: 4.5 G, ONCE NIGHTLY
     Route: 048
     Dates: start: 20240821, end: 20240821
  2. IVABRADINE [Concomitant]
     Active Substance: IVABRADINE
     Dosage: 7.5 MG, TWICE A DAY
  3. DESMOPRESSIN [Concomitant]
     Active Substance: DESMOPRESSIN
     Dosage: 0.2 MG DAILY
  4. ZOFRAN [Concomitant]
     Active Substance: ONDANSETRON HYDROCHLORIDE
     Dosage: 4 MG, AS NEEDED
  5. SUNOSI [Concomitant]
     Active Substance: SOLRIAMFETOL
     Dosage: 150 MG, DAILY
  6. HYOSCYAMINE [Concomitant]
     Active Substance: HYOSCYAMINE
     Dosage: 0.125 MG, AS NEEDED
  7. MODAFINIL [Concomitant]
     Active Substance: MODAFINIL
     Dosage: 200 MG
  8. CROMOLYN SODIUM [Concomitant]
     Active Substance: CROMOLYN SODIUM
     Dosage: 10 ML, FOUR TIMES A DAY
  9. OMEPRAZOLE [Concomitant]
     Active Substance: OMEPRAZOLE
     Dosage: 20 MG, DAILY
  10. MULTIVITAMIN IRON [Concomitant]
     Dosage: UNK, ONCE DAILY
  11. MAGNESIUM CITRATE [Concomitant]
     Active Substance: MAGNESIUM CITRATE
     Dosage: 250 MG, ONCE DAILY
  12. LEXAPRO [Concomitant]
     Active Substance: ESCITALOPRAM OXALATE
     Dosage: 10 MG, ONCE DAILY
  13. MIRENA [Concomitant]
     Active Substance: LEVONORGESTREL
     Dosage: MIRENA IUD

REACTIONS (6)
  - Fatigue [Recovered/Resolved]
  - Energy increased [Recovered/Resolved]
  - Dyskinesia [Recovered/Resolved]
  - Feeling abnormal [Recovered/Resolved]
  - Initial insomnia [Recovered/Resolved]
  - Nausea [Recovered/Resolved]

NARRATIVE: CASE EVENT DATE: 20240821
